FAERS Safety Report 25459831 (Version 1)
Quarter: 2025Q2

REPORT INFORMATION
  Report Type: Spontaneous
  Country: RO (occurrence: RO)
  Receive Date: 20250620
  Receipt Date: 20250620
  Transmission Date: 20250716
  Serious: Yes (Other)
  Sender: RANBAXY
  Company Number: RO-SUN PHARMACEUTICAL INDUSTRIES LTD-2025RR-512934

PATIENT
  Age: 44 Year
  Sex: Male

DRUGS (3)
  1. TEMOZOLOMIDE [Suspect]
     Active Substance: TEMOZOLOMIDE
     Indication: Brain neoplasm
     Dosage: 75 MILLIGRAM/SQ. METER, DAILY, OF BODY-SURFACE AREA
     Route: 065
  2. TEMOZOLOMIDE [Suspect]
     Active Substance: TEMOZOLOMIDE
     Dosage: 150 MILLIGRAM/SQ. METER, DAILY, OF BODY-SURFACE AREA
     Route: 065
  3. TEMOZOLOMIDE [Suspect]
     Active Substance: TEMOZOLOMIDE
     Dosage: 320 MILLIGRAM, DAILY, DAYS 1 TO 5
     Route: 065

REACTIONS (2)
  - Neutropenia [Unknown]
  - Neoplasm progression [Unknown]
